FAERS Safety Report 14664696 (Version 1)
Quarter: 2018Q1

REPORT INFORMATION
  Report Type: Spontaneous
  Country: US (occurrence: US)
  Receive Date: 20180319
  Receipt Date: 20180319
  Transmission Date: 20180509
  Serious: No
  Sender: FDA-Public Use
  Company Number: None

PATIENT
  Sex: Male

DRUGS (2)
  1. TACROLIMUS 1MG DR. REDDY^S LABORATORIES, INC [Suspect]
     Active Substance: TACROLIMUS
     Indication: RENAL TRANSPLANT
     Dosage: 2 CAPSULES EVERY MORNING DAILY ORALLY
     Route: 048
     Dates: start: 20150825
  2. MYCOPHENOLATE 500MG WEST-WARD PHARMA CEUTICAL CORP [Suspect]
     Active Substance: MYCOPHENOLATE MOFETIL
     Indication: RENAL TRANSPLANT
     Route: 048
     Dates: start: 20151005

REACTIONS (1)
  - Heart rate irregular [None]
